FAERS Safety Report 5343544-0 (Version None)
Quarter: 2007Q2

REPORT INFORMATION
  Report Type: 
  Country: None (occurrence: None)
  Receive Date: 20070531
  Receipt Date: 20070514
  Transmission Date: 20071010
  Serious: Yes (Other)
  Sender: FDA-Public Use
  Company Number: PAR_01567_2007

PATIENT
  Age: 26 Year
  Sex: Male

DRUGS (2)
  1. CLOZAPINE [Suspect]
     Dosage: 50 MG QD
  2. VALPROATE SODIUM [Concomitant]

REACTIONS (6)
  - BURNING SENSATION [None]
  - INITIAL INSOMNIA [None]
  - MIDDLE INSOMNIA [None]
  - NO THERAPEUTIC RESPONSE [None]
  - RESTLESS LEGS SYNDROME [None]
  - SENSORY DISTURBANCE [None]
